FAERS Safety Report 18541959 (Version 1)
Quarter: 2020Q4

REPORT INFORMATION
  Report Type: Spontaneous
  Country: US (occurrence: US)
  Receive Date: 20201125
  Receipt Date: 20201125
  Transmission Date: 20210114
  Serious: No
  Sender: FDA-Public Use
  Company Number: US-ACCORD-204869

PATIENT
  Sex: Female
  Weight: 108.86 kg

DRUGS (1)
  1. BUPROPION/BUPROPION HYDROCHLORIDE [Suspect]
     Active Substance: BUPROPION HYDROCHLORIDE
     Indication: SMOKING CESSATION THERAPY
     Route: 048

REACTIONS (5)
  - Product odour abnormal [Unknown]
  - Product dose omission issue [Unknown]
  - Flatulence [Unknown]
  - Abdominal distension [Unknown]
  - Off label use [Unknown]
